FAERS Safety Report 17377305 (Version 3)
Quarter: 2020Q3

REPORT INFORMATION
  Report Type: Spontaneous
  Country: US (occurrence: US)
  Receive Date: 20200206
  Receipt Date: 20200914
  Transmission Date: 20201102
  Serious: No
  Sender: FDA-Public Use
  Company Number: US-PFIZER INC-2020050384

PATIENT
  Age: 37 Year
  Sex: Female

DRUGS (1)
  1. XELJANZ [Suspect]
     Active Substance: TOFACITINIB CITRATE
     Indication: RHEUMATOID ARTHRITIS
     Dosage: 5 MG, 2X/DAY
     Route: 048
     Dates: start: 20200128

REACTIONS (5)
  - Irritability [Recovering/Resolving]
  - Asthma [Unknown]
  - Pain [Recovering/Resolving]
  - Cough [Unknown]
  - Depression [Recovering/Resolving]

NARRATIVE: CASE EVENT DATE: 2020
